FAERS Safety Report 14967313 (Version 1)
Quarter: 2018Q2

REPORT INFORMATION
  Report Type: Spontaneous
  Country: BR (occurrence: BR)
  Receive Date: 20180604
  Receipt Date: 20180604
  Transmission Date: 20180711
  Serious: Yes (Hospitalization)
  Sender: FDA-Public Use
  Company Number: BR-CHEPLA-1935541

PATIENT
  Sex: Female
  Weight: 65 kg

DRUGS (11)
  1. PREDNISONE. [Suspect]
     Active Substance: PREDNISONE
     Dosage: 1 TABLET EVERY OTHER DAY
     Route: 065
  2. VESANOID [Suspect]
     Active Substance: TRETINOIN
     Indication: ACUTE PROMYELOCYTIC LEUKAEMIA
     Dosage: FOR 15 CONSECUTIVE DAYS PER CYCLE
     Route: 048
     Dates: start: 20161228
  3. FILGRASTIM [Suspect]
     Active Substance: FILGRASTIM
  4. ENALAPRIL [Concomitant]
     Active Substance: ENALAPRIL
     Route: 065
  5. ACYCLOVIR. [Concomitant]
     Active Substance: ACYCLOVIR
     Route: 065
  6. ZAVEDOS [Suspect]
     Active Substance: IDARUBICIN
     Indication: ACUTE PROMYELOCYTIC LEUKAEMIA
     Route: 042
     Dates: start: 20170125, end: 20170126
  7. CEFEPIM [Suspect]
     Active Substance: CEFEPIME HYDROCHLORIDE
  8. APRESOLINA [Concomitant]
     Active Substance: HYDRALAZINE HYDROCHLORIDE
     Route: 065
  9. PANTOPRAZOLE [Concomitant]
     Active Substance: PANTOPRAZOLE
     Route: 065
  10. EVOMIXAN [Suspect]
     Active Substance: MITOXANTRONE HYDROCHLORIDE
     Indication: ACUTE PROMYELOCYTIC LEUKAEMIA
     Route: 042
     Dates: start: 20161228, end: 20161230
  11. CLAVULIN [Suspect]
     Active Substance: AMOXICILLIN\CLAVULANIC ACID

REACTIONS (4)
  - Abdominal pain [Recovered/Resolved]
  - Febrile neutropenia [Recovered/Resolved]
  - Skin infection [Recovered/Resolved]
  - Diarrhoea [Recovered/Resolved]
